FAERS Safety Report 14184908 (Version 2)
Quarter: 2017Q4

REPORT INFORMATION
  Report Type: Report from Study
  Country: MX (occurrence: MX)
  Receive Date: 20171114
  Receipt Date: 20171124
  Transmission Date: 20180321
  Serious: Yes (Other)
  Sender: FDA-Public Use
  Company Number: PHHY2017MX167687

PATIENT
  Sex: Female

DRUGS (2)
  1. EXELON PATCH [Suspect]
     Active Substance: RIVASTIGMINE
     Indication: COGNITIVE DISORDER
  2. EXELON PATCH [Suspect]
     Active Substance: RIVASTIGMINE
     Indication: SENILE DEMENTIA
     Dosage: 1 DF, QD (1.5 MG, AS REPORTED) (2 OR 3 YEARS AGO)
     Route: 062

REACTIONS (3)
  - Parkinson^s disease [Unknown]
  - Drug hypersensitivity [Unknown]
  - Product use in unapproved indication [Not Recovered/Not Resolved]
